FAERS Safety Report 12393850 (Version 1)
Quarter: 2016Q2

REPORT INFORMATION
  Report Type: Spontaneous
  Country: GB (occurrence: GB)
  Receive Date: 20160523
  Receipt Date: 20160523
  Transmission Date: 20160815
  Serious: Yes (Other)
  Sender: FDA-Public Use
  Company Number: GB-ESPERO PHARMACEUTICALS-ESP201605-000002

PATIENT
  Age: 35 Year
  Sex: Male
  Weight: 80 kg

DRUGS (5)
  1. NITROGLYCERIN. [Suspect]
     Active Substance: NITROGLYCERIN
     Indication: PRODUCT USED FOR UNKNOWN INDICATION
     Dates: start: 20160218
  2. NORTRIPTYLINE [Concomitant]
     Active Substance: NORTRIPTYLINE
     Dates: start: 20140813, end: 20160218
  3. SALBUTAMOL [Concomitant]
     Active Substance: ALBUTEROL
     Dates: start: 20150619
  4. CLENIL MODULITE [Concomitant]
     Active Substance: BECLOMETHASONE DIPROPIONATE
     Dates: start: 20150630
  5. LEVOTHYROXINE. [Concomitant]
     Active Substance: LEVOTHYROXINE
     Dates: start: 20141111

REACTIONS (1)
  - Cervicogenic headache [Recovered/Resolved]

NARRATIVE: CASE EVENT DATE: 20160411
